FAERS Safety Report 25105686 (Version 1)
Quarter: 2025Q1

REPORT INFORMATION
  Report Type: Spontaneous
  Country: US (occurrence: US)
  Receive Date: 20250321
  Receipt Date: 20250321
  Transmission Date: 20250408
  Serious: No
  Sender: BRAEBURN PHARMACEUTICALS
  Company Number: US-BRAEBURN-US-BRA-24-001261

PATIENT
  Age: 46 Year
  Sex: Male

DRUGS (1)
  1. BRIXADI [Suspect]
     Active Substance: BUPRENORPHINE
     Indication: Product used for unknown indication
     Dosage: 128 MILLIGRAM, MONTHLY
     Route: 065
     Dates: start: 20241211

REACTIONS (7)
  - Hyperhidrosis [Unknown]
  - Yawning [Unknown]
  - Rhinorrhoea [Unknown]
  - Palpitations [Unknown]
  - Withdrawal syndrome [Unknown]
  - Drug dependence [Unknown]
  - Anxiety [Unknown]

NARRATIVE: CASE EVENT DATE: 20241215
